FAERS Safety Report 16795718 (Version 1)
Quarter: 2019Q4

REPORT INFORMATION
  Report Type: Spontaneous
  Country: US (occurrence: US)
  Receive Date: 20190910
  Receipt Date: 20190910
  Transmission Date: 20200122
  Serious: No
  Sender: FDA-Public Use
  Company Number: None

PATIENT
  Age: 33 Year
  Sex: Female
  Weight: 86.18 kg

DRUGS (1)
  1. MIRENA [Suspect]
     Active Substance: LEVONORGESTREL

REACTIONS (10)
  - Alopecia [None]
  - Amnesia [None]
  - Apathy [None]
  - Premenstrual dysphoric disorder [None]
  - Dissociation [None]
  - Weight increased [None]
  - Suicidal ideation [None]
  - Anxiety [None]
  - Hair growth abnormal [None]
  - Feeling abnormal [None]
